FAERS Safety Report 25837556 (Version 2)
Quarter: 2025Q3

REPORT INFORMATION
  Report Type: Spontaneous
  Country: EU (occurrence: EU)
  Receive Date: 20250923
  Receipt Date: 20250929
  Transmission Date: 20251021
  Serious: Yes (Hospitalization, Other)
  Sender: MYLAN
  Company Number: EU-ASTRAZENECA-202509GLO002684ES

PATIENT
  Age: 55 Year
  Sex: Female

DRUGS (28)
  1. FULVESTRANT [Suspect]
     Active Substance: FULVESTRANT
     Indication: Breast cancer
     Dates: start: 202201
  2. FULVESTRANT [Suspect]
     Active Substance: FULVESTRANT
     Indication: Metastases to liver
     Route: 065
     Dates: start: 202201
  3. FULVESTRANT [Suspect]
     Active Substance: FULVESTRANT
     Indication: Metastases to bone
     Route: 065
     Dates: start: 202201
  4. FULVESTRANT [Suspect]
     Active Substance: FULVESTRANT
     Dates: start: 202201
  5. PALBOCICLIB [Suspect]
     Active Substance: PALBOCICLIB
     Indication: Breast cancer
     Dates: start: 202201
  6. PALBOCICLIB [Suspect]
     Active Substance: PALBOCICLIB
     Indication: Metastases to liver
     Route: 065
     Dates: start: 202201
  7. PALBOCICLIB [Suspect]
     Active Substance: PALBOCICLIB
     Indication: Metastases to bone
     Route: 065
     Dates: start: 202201
  8. PALBOCICLIB [Suspect]
     Active Substance: PALBOCICLIB
     Dates: start: 202201
  9. EPIRUBICIN [Suspect]
     Active Substance: EPIRUBICIN
     Indication: Breast cancer
  10. EPIRUBICIN [Suspect]
     Active Substance: EPIRUBICIN
     Route: 065
  11. EPIRUBICIN [Suspect]
     Active Substance: EPIRUBICIN
     Route: 065
  12. EPIRUBICIN [Suspect]
     Active Substance: EPIRUBICIN
  13. CYCLOPHOSPHAMIDE [Suspect]
     Active Substance: CYCLOPHOSPHAMIDE
     Indication: Breast cancer
  14. CYCLOPHOSPHAMIDE [Suspect]
     Active Substance: CYCLOPHOSPHAMIDE
     Route: 065
  15. CYCLOPHOSPHAMIDE [Suspect]
     Active Substance: CYCLOPHOSPHAMIDE
     Route: 065
  16. CYCLOPHOSPHAMIDE [Suspect]
     Active Substance: CYCLOPHOSPHAMIDE
  17. EVEROLIMUS [Concomitant]
     Active Substance: EVEROLIMUS
     Indication: Breast cancer
  18. EVEROLIMUS [Concomitant]
     Active Substance: EVEROLIMUS
     Route: 065
  19. EVEROLIMUS [Concomitant]
     Active Substance: EVEROLIMUS
     Route: 065
  20. EVEROLIMUS [Concomitant]
     Active Substance: EVEROLIMUS
  21. FLUOROURACIL [Concomitant]
     Active Substance: FLUOROURACIL
     Indication: Breast cancer
  22. FLUOROURACIL [Concomitant]
     Active Substance: FLUOROURACIL
     Route: 065
  23. FLUOROURACIL [Concomitant]
     Active Substance: FLUOROURACIL
     Route: 065
  24. FLUOROURACIL [Concomitant]
     Active Substance: FLUOROURACIL
  25. TAMOXIFEN [Concomitant]
     Active Substance: TAMOXIFEN
     Indication: Breast cancer
  26. TAMOXIFEN [Concomitant]
     Active Substance: TAMOXIFEN
     Route: 065
  27. TAMOXIFEN [Concomitant]
     Active Substance: TAMOXIFEN
     Route: 065
  28. TAMOXIFEN [Concomitant]
     Active Substance: TAMOXIFEN

REACTIONS (5)
  - Cardiac failure [Recovered/Resolved]
  - Cardiomyopathy [Recovered/Resolved]
  - Cardiotoxicity [Recovered/Resolved]
  - Acute pulmonary oedema [Unknown]
  - Drug ineffective [Unknown]
